FAERS Safety Report 5186333-2 (Version None)
Quarter: 2006Q4

REPORT INFORMATION
  Report Type: 
  Country: None (occurrence: None)
  Receive Date: 20061213
  Receipt Date: 20061130
  Transmission Date: 20070319
  Serious: Yes (Disabling)
  Sender: FDA-Public Use
  Company Number: 2006086158

PATIENT
  Age: 4 Year
  Sex: Female
  Weight: 12 kg

DRUGS (9)
  1. VFEND [Suspect]
     Indication: DRUG USE FOR UNKNOWN INDICATION
     Dosage: 100 MG (50 MG, 2 IN 1 D), ORAL
     Route: 048
     Dates: start: 20040501
  2. DOMPERIDONE (DOMPERIDONE) [Suspect]
     Indication: DRUG USE FOR UNKNOWN INDICATION
     Dosage: (4 IN 1 D), ORAL
     Route: 048
  3. SALBUTAMOL (SALBUTAMOL) [Suspect]
     Indication: ASTHMA
     Dosage: 6 DF (3 IN 1 D), INHALATION
     Route: 055
  4. FLUTICASONE PROPIONATE [Suspect]
     Indication: ASTHMA
     Dosage: 50 MG (1 IN 1 D)
  5. BACTRIM PEDIATRIC [Suspect]
     Indication: SUPERINFECTION
     Dosage: 15 ML, ORAL
     Route: 048
     Dates: start: 20020501
  6. NEUPOGEN [Suspect]
     Indication: DRUG USE FOR UNKNOWN INDICATION
     Dosage: 13.4 MU, SUBCUTANEOUS
     Route: 058
     Dates: end: 20060622
  7. NEUPOGEN [Suspect]
     Indication: DRUG USE FOR UNKNOWN INDICATION
     Dosage: 13.4 MU, SUBCUTANEOUS
     Route: 058
     Dates: start: 20060706
  8. COTRIM [Suspect]
     Indication: INFECTION PROPHYLAXIS
     Dosage: 15 ML, ORAL
     Route: 048
     Dates: start: 20020502
  9. GAVISCON [Concomitant]

REACTIONS (3)
  - CRYOGLOBULINAEMIA [None]
  - TOE AMPUTATION [None]
  - VASCULITIS [None]
